FAERS Safety Report 25798519 (Version 1)
Quarter: 2025Q3

REPORT INFORMATION
  Report Type: Spontaneous
  Country: EU (occurrence: EU)
  Receive Date: 20250913
  Receipt Date: 20250913
  Transmission Date: 20251021
  Serious: Yes (Life-Threatening, Hospitalization, Other)
  Sender: CELLTRION
  Company Number: EU-CELLTRION INC.-2025CZ008856

PATIENT

DRUGS (2)
  1. YUFLYMA [Suspect]
     Active Substance: ADALIMUMAB-AATY
     Indication: Product used for unknown indication
  2. YUFLYMA [Suspect]
     Active Substance: ADALIMUMAB-AATY

REACTIONS (14)
  - Respiratory failure [Recovered/Resolved]
  - Finger amputation [Recovered/Resolved]
  - Debridement [Recovered/Resolved]
  - Limb amputation [Recovered/Resolved]
  - Limb amputation [Recovered/Resolved]
  - Amputation [Recovered/Resolved]
  - Post procedural complication [Recovered/Resolved]
  - Amputation stump pain [Recovered/Resolved]
  - Post procedural erythema [Recovered/Resolved]
  - Haematoma evacuation [Recovered/Resolved]
  - Influenza [Recovered/Resolved]
  - Inflammation [Recovered/Resolved]
  - Cellulitis [Recovered/Resolved]
  - Legionella infection [Recovered/Resolved]

NARRATIVE: CASE EVENT DATE: 20240927
